FAERS Safety Report 6284904-3 (Version None)
Quarter: 2009Q3

REPORT INFORMATION
  Report Type: 
  Country: None (occurrence: None)
  Receive Date: 20090727
  Receipt Date: 20090717
  Transmission Date: 20100115
  Serious: Yes (Hospitalization)
  Sender: FDA-Public Use
  Company Number: US-ABBOTT-09P-163-0585937-00

PATIENT
  Sex: Female

DRUGS (3)
  1. HUMIRA [Suspect]
     Indication: ANKYLOSING SPONDYLITIS
     Route: 058
     Dates: start: 20090301
  2. OXYCODONE [Concomitant]
     Indication: DRUG USE FOR UNKNOWN INDICATION
  3. METHOTREXATE [Concomitant]
     Indication: ANKYLOSING SPONDYLITIS

REACTIONS (4)
  - BLOOD SODIUM DECREASED [None]
  - CONVULSION [None]
  - DEPRESSION [None]
  - REFUSAL OF TREATMENT BY PATIENT [None]
